FAERS Safety Report 6682320-3 (Version None)
Quarter: 2010Q2

REPORT INFORMATION
  Report Type: 
  Country: None (occurrence: None)
  Receive Date: 20100414
  Receipt Date: 20100414
  Transmission Date: 20101027
  Serious: Yes (Hospitalization)
  Sender: FDA-Public Use
  Company Number: None

PATIENT
  Age: 25 Year
  Sex: Male
  Weight: 76.7 kg

DRUGS (3)
  1. QUETIAPINE [Suspect]
     Indication: INSOMNIA
     Dosage: 100 MG EVERY DAY PO
     Route: 048
     Dates: start: 20100201, end: 20100205
  2. QUETIAPINE [Suspect]
     Indication: SELF-MEDICATION
     Dosage: 100 MG EVERY DAY PO
     Route: 048
     Dates: start: 20100201, end: 20100205
  3. QUETIAPINE [Suspect]
     Indication: SLEEP DISORDER
     Dosage: 100 MG EVERY DAY PO
     Route: 048
     Dates: start: 20100201, end: 20100205

REACTIONS (5)
  - ALANINE AMINOTRANSFERASE INCREASED [None]
  - ALDOLASE INCREASED [None]
  - ASPARTATE AMINOTRANSFERASE INCREASED [None]
  - BLOOD CREATINE PHOSPHOKINASE INCREASED [None]
  - MYALGIA [None]
